FAERS Safety Report 10314072 (Version 2)
Quarter: 2020Q3

REPORT INFORMATION
  Report Type: Report from Study
  Country: GB (occurrence: GB)
  Receive Date: 20140718
  Receipt Date: 20140718
  Transmission Date: 20201105
  Serious: Yes (Hospitalization, Other)
  Sender: FDA-Public Use
  Company Number: GB-JNJFOC-20140504628

PATIENT
  Age: 69 Year
  Sex: Female
  Weight: 60 kg

DRUGS (8)
  1. BLINDED; IBRUTINI [Suspect]
     Active Substance: IBRUTINIB
     Indication: DIFFUSE LARGE B-CELL LYMPHOMA
     Dosage: MEDICATION KIT NUMBER 11635
     Route: 048
     Dates: start: 20130430
  2. PREDNISOLONE. [Concomitant]
     Active Substance: PREDNISOLONE
     Indication: DIFFUSE LARGE B-CELL LYMPHOMA
     Dosage: FIRST AND MOST RECENT DOSE: ^30?MAY?2014^ (FUTURE DATE)
     Route: 065
     Dates: start: 20140426, end: 20140525
  3. BLINDED; IBRUTINI [Suspect]
     Active Substance: IBRUTINIB
     Route: 048
  4. DOXORUBICIN [Concomitant]
     Active Substance: DOXORUBICIN
     Indication: DIFFUSE LARGE B-CELL LYMPHOMA
     Dosage: FIRST AND MOST RECENT DOSE: ^30?MAY?2014^ (FUTURE DATE)
     Route: 065
     Dates: start: 20140426, end: 20140525
  5. RITUXIMAB. [Concomitant]
     Active Substance: RITUXIMAB
     Indication: DIFFUSE LARGE B-CELL LYMPHOMA
     Dosage: FIRST AND MOST RECENT DOSE: ^30?MAY?2014^ (FUTURE DATE)
     Route: 048
     Dates: start: 20140426, end: 20140525
  6. PLACEBO [Suspect]
     Active Substance: UNSPECIFIED INGREDIENT
     Indication: DIFFUSE LARGE B-CELL LYMPHOMA
     Route: 048
     Dates: start: 20130430
  7. CYCLOPHOSPHAMIDE. [Concomitant]
     Active Substance: CYCLOPHOSPHAMIDE
     Indication: DIFFUSE LARGE B-CELL LYMPHOMA
     Dosage: FIRST AND MOST RECENT DOSE: ^30?MAY?2014^ (FUTURE DATE)
     Route: 065
     Dates: start: 20140426, end: 20140525
  8. VINCRISTINE [Concomitant]
     Active Substance: VINCRISTINE
     Indication: DIFFUSE LARGE B-CELL LYMPHOMA
     Dosage: FIRST AND MOST RECENT DOSE: ^30?MAY?2014^ (FUTURE DATE)
     Route: 065
     Dates: start: 20140426, end: 20140525

REACTIONS (5)
  - Syncope [Recovering/Resolving]
  - Vomiting [Not Recovered/Not Resolved]
  - Abdominal pain [None]
  - Blood pressure systolic increased [None]
  - Diarrhoea [Not Recovered/Not Resolved]

NARRATIVE: CASE EVENT DATE: 20140505
